FAERS Safety Report 5127050-4 (Version None)
Quarter: 2006Q4

REPORT INFORMATION
  Report Type: 
  Country: None (occurrence: None)
  Receive Date: 20061013
  Receipt Date: 20061005
  Transmission Date: 20070319
  Serious: Yes (Hospitalization, Other)
  Sender: FDA-Public Use
  Company Number: AU-JNJFOC-20061001524

PATIENT
  Sex: Male
  Weight: 75 kg

DRUGS (7)
  1. REMINYL [Suspect]
     Indication: DEMENTIA ALZHEIMER'S TYPE
     Route: 048
  2. REMINYL [Suspect]
     Route: 048
  3. LASIX [Concomitant]
  4. SLOW-K [Concomitant]
  5. ASPIRIN [Concomitant]
  6. TRANSIDERM PATCH [Concomitant]
  7. NOTEN [Concomitant]

REACTIONS (2)
  - NOCTURIA [None]
  - POLYDIPSIA [None]
